FAERS Safety Report 6018751-4 (Version None)
Quarter: 2008Q4

REPORT INFORMATION
  Report Type: 
  Country: None (occurrence: None)
  Receive Date: 20081223
  Receipt Date: 20081216
  Transmission Date: 20090506
  Serious: Yes (Hospitalization, Other)
  Sender: FDA-Public Use
  Company Number: US-AMGEN-QUU324386

PATIENT
  Sex: Female

DRUGS (2)
  1. ENBREL [Suspect]
     Indication: RHEUMATOID ARTHRITIS
     Route: 058
     Dates: start: 20000101, end: 20080905
  2. PREDNISONE TAB [Concomitant]

REACTIONS (10)
  - ABASIA [None]
  - ANAEMIA [None]
  - BREAST CANCER [None]
  - FOOT DEFORMITY [None]
  - HIP ARTHROPLASTY [None]
  - IMPAIRED HEALING [None]
  - INTERVERTEBRAL DISC DEGENERATION [None]
  - LUPUS-LIKE SYNDROME [None]
  - PYREXIA [None]
  - SPINAL FUSION SURGERY [None]
